FAERS Safety Report 5966875-X (Version None)
Quarter: 2008Q4

REPORT INFORMATION
  Report Type: 
  Country: None (occurrence: None)
  Receive Date: 20081125
  Receipt Date: 20080922
  Transmission Date: 20090506
  Serious: No
  Sender: FDA-Public Use
  Company Number: US-AMGEN-KDL309106

PATIENT
  Sex: Male

DRUGS (2)
  1. ENBREL [Suspect]
     Indication: PSORIASIS
     Route: 058
  2. UNSPECIFIED TOPICAL PRODUCT [Concomitant]

REACTIONS (2)
  - PIGMENTATION DISORDER [None]
  - PSORIASIS [None]
